FAERS Safety Report 18814007 (Version 5)
Quarter: 2021Q2

REPORT INFORMATION
  Report Type: Spontaneous
  Country: JP (occurrence: JP)
  Receive Date: 20210201
  Receipt Date: 20210615
  Transmission Date: 20210717
  Serious: Yes (Other)
  Sender: FDA-Public Use
  Company Number: JP-AMGEN-JPNSP2020203296

PATIENT
  Age: 80 Year
  Sex: Female

DRUGS (6)
  1. CALONAL [Concomitant]
     Active Substance: ACETAMINOPHEN
     Indication: HERPES ZOSTER
     Dosage: 400 MILLIGRAM, TID
     Route: 048
     Dates: start: 20200901, end: 20200907
  2. AMENALIEF [Concomitant]
     Active Substance: AMENAMEVIR
     Indication: HERPES ZOSTER
     Dosage: 400 MILLIGRAM, QD
     Route: 048
     Dates: start: 20200901, end: 20200907
  3. NESP [Suspect]
     Active Substance: DARBEPOETIN ALFA
     Dosage: 240 MICROGRAM, Q2MO
     Route: 042
     Dates: start: 20201102, end: 20201110
  4. ARASENA A [Concomitant]
     Active Substance: VIDARABINE
     Indication: HERPES ZOSTER
     Dosage: UNK UNK, BID
     Route: 061
     Dates: start: 20200901
  5. NESP [Suspect]
     Active Substance: DARBEPOETIN ALFA
     Dosage: 240 MICROGRAM, Q2MO
     Route: 042
     Dates: start: 20200204, end: 20201020
  6. NESP [Suspect]
     Active Substance: DARBEPOETIN ALFA
     Indication: MYELODYSPLASTIC SYNDROME
     Dosage: 240 MICROGRAM, QMO
     Route: 042
     Dates: start: 20190305, end: 20200107

REACTIONS (3)
  - Herpes zoster [Recovered/Resolved]
  - Disease progression [Recovered/Resolved]
  - Aplasia pure red cell [Recovered/Resolved]

NARRATIVE: CASE EVENT DATE: 20200901
